FAERS Safety Report 20442487 (Version 1)
Quarter: 2022Q1

REPORT INFORMATION
  Report Type: Spontaneous
  Country: US (occurrence: US)
  Receive Date: 20220208
  Receipt Date: 20220208
  Transmission Date: 20220423
  Serious: No
  Sender: FDA-Public Use
  Company Number: US-ALLERGAN-2129946US

PATIENT
  Age: 58 Year
  Sex: Male
  Weight: 70.748 kg

DRUGS (8)
  1. VIIBRYD [Suspect]
     Active Substance: VILAZODONE HYDROCHLORIDE
     Indication: Depression
     Dosage: 20 MG, QD
     Route: 048
     Dates: start: 202108
  2. VIIBRYD [Suspect]
     Active Substance: VILAZODONE HYDROCHLORIDE
     Dosage: 10 MG, QD
     Route: 048
     Dates: start: 20210808, end: 202108
  3. UNSPECIFIED INGREDIENT [Concomitant]
     Active Substance: UNSPECIFIED INGREDIENT
     Indication: Depression
  4. LAMICTAL [Concomitant]
     Active Substance: LAMOTRIGINE
     Indication: Anxiety
     Dosage: 50 MG, QD
  5. LAMICTAL [Concomitant]
     Active Substance: LAMOTRIGINE
     Dosage: 150 MG
  6. LAMICTAL [Concomitant]
     Active Substance: LAMOTRIGINE
     Dosage: 25 MG
     Dates: start: 202106
  7. AMBIEN [Concomitant]
     Active Substance: ZOLPIDEM TARTRATE
     Indication: Sleep disorder
     Dosage: 10 MG, QHS
     Dates: start: 2000
  8. XANAX [Concomitant]
     Active Substance: ALPRAZOLAM
     Indication: Nervousness
     Dosage: 0.5MG 1-3 TIMES A DAY

REACTIONS (1)
  - Nervousness [Not Recovered/Not Resolved]

NARRATIVE: CASE EVENT DATE: 20210801
